FAERS Safety Report 11795299 (Version 1)
Quarter: 2015Q4

REPORT INFORMATION
  Report Type: Spontaneous
  Country: FR (occurrence: FR)
  Receive Date: 20151202
  Receipt Date: 20151202
  Transmission Date: 20160305
  Serious: Yes (Disabling, Congenital Anomaly)
  Sender: FDA-Public Use
  Company Number: FR-PFIZER INC-2015413184

PATIENT
  Sex: Female
  Weight: 1.77 kg

DRUGS (5)
  1. BACLOFEN ZENTIVA [Suspect]
     Active Substance: BACLOFEN
     Indication: ALCOHOLISM
     Dosage: 21 DF, DAILY
     Route: 064
     Dates: end: 20150611
  2. SEROPLEX [Suspect]
     Active Substance: ESCITALOPRAM OXALATE
     Dosage: 1 DF, 1X/DAY
     Route: 064
     Dates: end: 20150611
  3. XANAX [Suspect]
     Active Substance: ALPRAZOLAM
     Dosage: UNK
     Route: 064
     Dates: end: 20150611
  4. BACLOFEN ZENTIVA [Suspect]
     Active Substance: BACLOFEN
     Dosage: 12 DF, DAILY
     Dates: start: 20151105
  5. SERESTA [Suspect]
     Active Substance: OXAZEPAM
     Dosage: UNK
     Route: 064
     Dates: end: 20150611

REACTIONS (5)
  - Maternal exposure during pregnancy [Not Recovered/Not Resolved]
  - Congenital anomaly [None]
  - Foetal malnutrition [Not Recovered/Not Resolved]
  - Low birth weight baby [Not Recovered/Not Resolved]
  - Maternal drugs affecting foetus [None]

NARRATIVE: CASE EVENT DATE: 20150611
